FAERS Safety Report 6387087-4 (Version None)
Quarter: 2009Q4

REPORT INFORMATION
  Report Type: 
  Country: None (occurrence: None)
  Receive Date: 20091002
  Receipt Date: 20090922
  Transmission Date: 20100525
  Serious: Yes (Death)
  Sender: FDA-Public Use
  Company Number: FR-ROCHE-646138

PATIENT
  Age: 49 Year
  Sex: Male
  Weight: 110 kg

DRUGS (3)
  1. TAMIFLU [Suspect]
     Route: 048
     Dates: start: 20090723, end: 20090725
  2. SYMBICORT [Concomitant]
     Indication: ASTHMA
     Dosage: ROUTE: RESPIRATORY
     Route: 050
  3. TERBUTALINE SULFATE [Concomitant]
     Dosage: DRUG: TERBUTALINE ARROW 5MG/2ML; ROUTE: RESPIRATORY
     Route: 050
     Dates: start: 20090726

REACTIONS (2)
  - INFLUENZA [None]
  - PULMONARY OEDEMA [None]
